FAERS Safety Report 19323713 (Version 1)
Quarter: 2021Q2

REPORT INFORMATION
  Report Type: Spontaneous
  Country: IN (occurrence: IN)
  Receive Date: 20210528
  Receipt Date: 20210528
  Transmission Date: 20210717
  Serious: No
  Sender: FDA-Public Use
  Company Number: IN-LUPIN PHARMACEUTICALS INC.-2021-07822

PATIENT
  Sex: Male

DRUGS (1)
  1. XIMECEFF TABLET [Suspect]
     Active Substance: CEFIXIME
     Indication: WOUND
     Dosage: UNK (2 TABLETS)
     Route: 065

REACTIONS (2)
  - No adverse event [Unknown]
  - Prescription drug used without a prescription [Unknown]
